FAERS Safety Report 12417617 (Version 3)
Quarter: 2016Q2

REPORT INFORMATION
  Report Type: Report from Study
  Country: MX (occurrence: MX)
  Receive Date: 20160530
  Receipt Date: 20160627
  Transmission Date: 20160815
  Serious: Yes (Hospitalization, Other)
  Sender: FDA-Public Use
  Company Number: PHHY2016MX071962

PATIENT
  Sex: Female
  Weight: 56 kg

DRUGS (5)
  1. GALVUS MET [Suspect]
     Active Substance: METFORMIN HYDROCHLORIDE\VILDAGLIPTIN
     Indication: DIABETES MELLITUS
     Dosage: 1.5 DF (ONE IN THE MORNING AND HALF AT NIGHT) (15 YEARS AGO)
     Route: 048
  2. EUTIROX [Concomitant]
     Active Substance: LEVOTHYROXINE SODIUM
     Indication: PRODUCT USED FOR UNKNOWN INDICATION
     Dosage: 1 DF, QD (IN FAST) (7 MONTHS AGO)
     Route: 065
  3. CO-DIOVAN [Suspect]
     Active Substance: HYDROCHLOROTHIAZIDE\VALSARTAN
     Indication: HYPERTENSION
     Dosage: 1 DF (HYDROCHLOROTHIAZIDE 12.5MG, VALSARTAN 160 MG), QD
     Route: 065
  4. GALVUS MET [Suspect]
     Active Substance: METFORMIN HYDROCHLORIDE\VILDAGLIPTIN
     Dosage: 1 DF, QD (10 YEARS AGO)
     Route: 048
  5. ANAPSIQUE [Concomitant]
     Indication: PRODUCT USED FOR UNKNOWN INDICATION
     Dosage: 0.5 DF, QD (IN THE AFTERNOON) (10 MONTHS AGO)
     Route: 048

REACTIONS (25)
  - Abasia [Recovered/Resolved]
  - Nervous system disorder [Unknown]
  - Blood pressure increased [Unknown]
  - Gastritis [Unknown]
  - Bone cancer [Unknown]
  - Dysphonia [Unknown]
  - Colitis [Not Recovered/Not Resolved]
  - Cerebral infarction [Unknown]
  - Blood potassium decreased [Recovered/Resolved]
  - Head injury [Unknown]
  - Mass [Unknown]
  - Inflammation [Recovering/Resolving]
  - Wrong technique in product usage process [Unknown]
  - Tachycardia [Unknown]
  - Headache [Recovered/Resolved]
  - Fall [Unknown]
  - Speech disorder [Recovered/Resolved]
  - Blood uric acid increased [Unknown]
  - Hyperthyroidism [Recovered/Resolved]
  - Skull fracture [Unknown]
  - Accident [Unknown]
  - Hypothyroidism [Not Recovered/Not Resolved]
  - Blood glucose increased [Unknown]
  - Skeletal injury [Unknown]
  - Pain in extremity [Recovering/Resolving]
